FAERS Safety Report 6862986-5 (Version None)
Quarter: 2010Q3

REPORT INFORMATION
  Report Type: 
  Country: None (occurrence: None)
  Receive Date: 20100719
  Receipt Date: 20100702
  Transmission Date: 20110219
  Serious: Yes (Death, Hospitalization)
  Sender: FDA-Public Use
  Company Number: 2010002737

PATIENT
  Age: 73 Year
  Sex: Male
  Weight: 52.25 kg

DRUGS (8)
  1. ERLOTINIB HYDROCHLORIDE [Suspect]
     Indication: LUNG ADENOCARCINOMA
     Dosage: 150 MG, QD, ORAL
     Route: 048
     Dates: start: 20080918, end: 20090128
  2. OXYCONTIN [Concomitant]
  3. NOVAMIN (PROCHLORPERAZINE) [Concomitant]
  4. SENNOSIDE [Concomitant]
  5. OXINORM (ORGOTEIN) [Concomitant]
  6. LOXONIN (LOXOPROFEN SODIUM) [Concomitant]
  7. SELBEX (TEPRENONE) [Concomitant]
  8. MOBIC [Concomitant]

REACTIONS (6)
  - CARDIO-RESPIRATORY ARREST [None]
  - DECREASED APPETITE [None]
  - FALL [None]
  - GASTRIC ULCER HAEMORRHAGE [None]
  - METASTASES TO LUNG [None]
  - SHOCK [None]
